FAERS Safety Report 4544298-8 (Version None)
Quarter: 2005Q1

REPORT INFORMATION
  Report Type: 
  Country: None (occurrence: None)
  Receive Date: 20050104
  Receipt Date: 20041203
  Transmission Date: 20050727
  Serious: Yes (Hospitalization)
  Sender: FDA-Public Use
  Company Number: NLWYE257403DEC04

PATIENT
  Sex: Male
  Weight: 88 kg

DRUGS (4)
  1. ENBREL [Suspect]
     Indication: PSORIATIC ARTHROPATHY
     Dosage: UNKNOWN
     Route: 058
     Dates: start: 20040724, end: 20041122
  2. METHOTREXATE [Concomitant]
  3. FOLIC ACID [Concomitant]
  4. ACETAMINOPHEN [Concomitant]

REACTIONS (3)
  - LIVER DISORDER [None]
  - NEOPLASM MALIGNANT [None]
  - NON-HODGKIN'S LYMPHOMA [None]
